FAERS Safety Report 20455469 (Version 2)
Quarter: 2022Q2

REPORT INFORMATION
  Report Type: Spontaneous
  Country: US (occurrence: US)
  Receive Date: 20220210
  Receipt Date: 20220411
  Transmission Date: 20220721
  Serious: No
  Sender: FDA-Public Use
  Company Number: US-KYOWAKIRIN-2022BKK001166

PATIENT

DRUGS (1)
  1. NOURIANZ [Suspect]
     Active Substance: ISTRADEFYLLINE
     Indication: Parkinson^s disease
     Dosage: 20 MG, DAILY, TOOK IT X2 WEEKS
     Route: 048
     Dates: start: 20211220, end: 202201

REACTIONS (8)
  - Pain [Unknown]
  - Hyperhidrosis [Unknown]
  - Condition aggravated [Unknown]
  - Drug intolerance [Unknown]
  - On and off phenomenon [Unknown]
  - Dyspnoea [Unknown]
  - Dyskinesia [Unknown]
  - Therapy non-responder [Unknown]
